FAERS Safety Report 17576008 (Version 1)
Quarter: 2020Q1

REPORT INFORMATION
  Report Type: Spontaneous
  Country: DE (occurrence: FR)
  Receive Date: 20200324
  Receipt Date: 20200324
  Transmission Date: 20200409
  Serious: Yes (Life-Threatening, Hospitalization)
  Sender: FDA-Public Use
  Company Number: FR-ELI_LILLY_AND_COMPANY-17161977

PATIENT
  Age: 64 Year
  Sex: Male

DRUGS (2)
  1. ERBITUX [Suspect]
     Active Substance: CETUXIMAB
     Indication: OROPHARYNGEAL CANCER STAGE III
     Dosage: 596 MG, UNK
     Route: 042
     Dates: start: 20121017, end: 20121017
  2. ERBITUX [Suspect]
     Active Substance: CETUXIMAB
     Dosage: 596 MG, UNK
     Route: 042
     Dates: start: 20121017, end: 20121017

REACTIONS (1)
  - Cardio-respiratory arrest [Recovered/Resolved]

NARRATIVE: CASE EVENT DATE: 20121017
